FAERS Safety Report 6424110-2 (Version None)
Quarter: 2009Q4

REPORT INFORMATION
  Report Type: 
  Country: None (occurrence: None)
  Receive Date: 20091102
  Receipt Date: 20091021
  Transmission Date: 20100525
  Serious: Yes (Hospitalization)
  Sender: FDA-Public Use
  Company Number: US-AMGEN-US370646

PATIENT
  Sex: Female

DRUGS (15)
  1. NEULASTA [Suspect]
     Indication: CHEMOTHERAPY
     Route: 058
     Dates: start: 20090806, end: 20090806
  2. DOXORUBICIN HCL [Suspect]
     Route: 042
     Dates: start: 20090806, end: 20090806
  3. VINCRISTINE [Suspect]
     Route: 042
     Dates: start: 20090806, end: 20090806
  4. RITUXAN [Suspect]
     Route: 042
     Dates: start: 20090806, end: 20090806
  5. CYCLOPHOSPHAMIDE [Suspect]
     Route: 042
     Dates: start: 20090806, end: 20090806
  6. PREDNISONE [Suspect]
     Route: 048
     Dates: start: 20090806, end: 20090810
  7. ALBUTEROL [Concomitant]
     Route: 055
  8. CITALOPRAM [Concomitant]
     Route: 065
  9. COLACE [Concomitant]
     Route: 065
  10. COMPAZINE [Concomitant]
     Route: 065
  11. FLUTICASONE [Concomitant]
     Route: 065
  12. LORAZEPAM [Concomitant]
     Route: 065
  13. PRILOSEC [Concomitant]
     Route: 065
  14. ALLOPURINOL [Concomitant]
     Route: 065
  15. ACETAMINOPHEN [Concomitant]
     Route: 065

REACTIONS (3)
  - DYSPNOEA [None]
  - FEBRILE NEUTROPENIA [None]
  - PLEURAL EFFUSION [None]
